FAERS Safety Report 8803920 (Version 7)
Quarter: 2020Q2

REPORT INFORMATION
  Report Type: Spontaneous
  Country: US (occurrence: US)
  Receive Date: 20120924
  Receipt Date: 20200506
  Transmission Date: 20200714
  Serious: No
  Sender: FDA-Public Use
  Company Number: US-PFIZER INC-2012233333

PATIENT
  Age: 73 Year
  Sex: Female
  Weight: 56.69 kg

DRUGS (6)
  1. PREMARIN [Suspect]
     Active Substance: ESTROGENS, CONJUGATED
     Indication: VAGINAL WALL CONGESTION
     Dosage: 10 MG, ALTERNATE DAY
  2. PREMARIN [Suspect]
     Active Substance: ESTROGENS, CONJUGATED
     Indication: VAGINAL PROLAPSE
     Dosage: UNK, 2X/WEEK
     Route: 067
  3. PREMARIN [Suspect]
     Active Substance: ESTROGENS, CONJUGATED
     Dosage: 0.5 G, 2X/WEEK (INSERT 0.5GM PV 2 X WKLY FOR 30 DAYS)
     Route: 067
  4. PREMARIN [Suspect]
     Active Substance: ESTROGENS, CONJUGATED
     Indication: VULVOVAGINAL DISCOMFORT
     Dosage: 0.5 G, 2X/DAY (TWICE IN A DAY X 3 TIMES A WEEK)
  5. GABAPENTIN. [Concomitant]
     Active Substance: GABAPENTIN
     Indication: RESTLESS LEGS SYNDROME
     Dosage: 600 MG (FOUR TABLETS), 1X/DAY (AT NIGHT)
  6. CLONAZEPAM. [Concomitant]
     Active Substance: CLONAZEPAM
     Indication: RESTLESS LEGS SYNDROME
     Dosage: ONE AND HALF TABLET, ,X/DAY

REACTIONS (6)
  - Tendonitis [Recovered/Resolved]
  - Off label use [Unknown]
  - Ligament rupture [Recovered/Resolved]
  - Back pain [Recovered/Resolved]
  - Arthritis [Unknown]
  - Product use issue [Unknown]

NARRATIVE: CASE EVENT DATE: 2011
